FAERS Safety Report 5590355-7 (Version None)
Quarter: 2008Q1

REPORT INFORMATION
  Report Type: 
  Country: None (occurrence: None)
  Receive Date: 20080114
  Receipt Date: 20080109
  Transmission Date: 20080703
  Serious: No
  Sender: FDA-Public Use
  Company Number: US-BAXTER-2008BH000158

PATIENT
  Age: 3 Month
  Sex: Male

DRUGS (1)
  1. ACYCLOVIR [Suspect]
     Indication: VIRAL INFECTION
     Route: 042
     Dates: start: 20071201

REACTIONS (2)
  - DEVICE FAILURE [None]
  - DRUG DOSE OMISSION [None]
